FAERS Safety Report 8486077-5 (Version None)
Quarter: 2012Q2

REPORT INFORMATION
  Report Type: 
  Country: None (occurrence: None)
  Receive Date: 20120626
  Receipt Date: 20120611
  Transmission Date: 20120825
  Serious: Yes (Hospitalization, Disabling, Other)
  Sender: FDA-Public Use
  Company Number: 2011MPI00199

PATIENT
  Age: 29 Year
  Sex: Female

DRUGS (5)
  1. OXYCONTIN [Concomitant]
  2. RULIDE (ROXITHROMYCIN) [Concomitant]
  3. OXYCODONE HYDROCHLORIDE [Concomitant]
  4. BRENTUXIMAB VEDOTIN (BRENTUXIMAB VEDOTIN) INJECTION [Suspect]
     Indication: NON-HODGKIN'S LYMPHOMA RECURRENT
     Dosage: 1.8 MG/KG, INTRAVENOUS
     Route: 042
     Dates: start: 20110603, end: 20110720
  5. BUDESONIDE EASYHALER (BUDESONIDE) [Concomitant]

REACTIONS (7)
  - DIPLOPIA [None]
  - CONJUNCTIVITIS [None]
  - VISUAL FIELD DEFECT [None]
  - NEUROPATHY PERIPHERAL [None]
  - PAIN [None]
  - ASTHENIA [None]
  - UNDERWEIGHT [None]
